FAERS Safety Report 14596617 (Version 1)
Quarter: 2018Q1

REPORT INFORMATION
  Report Type: Spontaneous
  Country: GB (occurrence: GB)
  Receive Date: 20180304
  Receipt Date: 20180304
  Transmission Date: 20180509
  Serious: Yes (Other)
  Sender: FDA-Public Use
  Company Number: GB-DEXPHARM-20180140

PATIENT
  Age: 76 Year
  Sex: Female

DRUGS (3)
  1. HIBI SCRUB [Suspect]
     Active Substance: CHLORHEXIDINE GLUCONATE
     Indication: PRODUCT USED FOR UNKNOWN INDICATION
     Route: 065
  2. EXTRANEAL [Suspect]
     Active Substance: CALCIUM CHLORIDE\ICODEXTRIN\MAGNESIUM CHLORIDE\SODIUM CHLORIDE\SODIUM LACTATE
     Indication: PERITONEAL DIALYSIS
     Dosage: 1 BAG (7)
     Route: 033
  3. DIANEAL [Suspect]
     Active Substance: CALCIUM CHLORIDE\DEXTROSE\MAGNESIUM CHLORIDE\SODIUM CHLORIDE\SODIUM LACTATE
     Indication: PERITONEAL DIALYSIS
     Dosage: 1 BAG (7)
     Route: 033

REACTIONS (3)
  - Application site irritation [Unknown]
  - Device related infection [Recovered/Resolved]
  - Pneumonia [Unknown]
